FAERS Safety Report 7338934-0 (Version None)
Quarter: 2011Q1

REPORT INFORMATION
  Report Type: 
  Country: None (occurrence: None)
  Receive Date: 20110308
  Receipt Date: 20110304
  Transmission Date: 20110831
  Serious: Yes (Other)
  Sender: FDA-Public Use
  Company Number: US-PFIZER INC-2011048249

PATIENT
  Sex: Male
  Weight: 17.234 kg

DRUGS (1)
  1. ROBITUSSIN [Suspect]
     Indication: COUGH
     Dosage: UNK
     Dates: start: 20110302, end: 20110304

REACTIONS (1)
  - RASH GENERALISED [None]
